FAERS Safety Report 4441915-8 (Version None)
Quarter: 2004Q3

REPORT INFORMATION
  Report Type: 
  Country: None (occurrence: None)
  Receive Date: 20040907
  Receipt Date: 20040827
  Transmission Date: 20050211
  Serious: Yes (Other)
  Sender: FDA-Public Use
  Company Number: PHBS2004GF11385

PATIENT
  Age: 54 Year
  Sex: Male

DRUGS (6)
  1. RIFAMPICIN [Suspect]
     Indication: TUBERCULOID LEPROSY
     Dosage: 600 MG, QMO
     Route: 065
  2. DAPSONE [Suspect]
     Indication: TUBERCULOID LEPROSY
     Dosage: 100 MG, QD
     Route: 065
  3. CLOFAZIMINE [Suspect]
     Indication: TUBERCULOID LEPROSY
     Dosage: 100 MG, QD
     Route: 065
  4. ZIDOVUDINE [Concomitant]
     Indication: HIV TEST POSITIVE
     Dates: start: 20020601
  5. LAMIVUDINE [Concomitant]
     Indication: HIV TEST POSITIVE
     Dates: start: 20020601
  6. ABACAVIR [Concomitant]
     Indication: HIV TEST POSITIVE
     Dosage: UNK, UNK
     Dates: start: 20020601

REACTIONS (3)
  - DISEASE PROGRESSION [None]
  - SKIN ULCER [None]
  - TUBERCULOID LEPROSY [None]
